FAERS Safety Report 19465516 (Version 1)
Quarter: 2021Q2

REPORT INFORMATION
  Report Type: Report from Study
  Country: US (occurrence: US)
  Receive Date: 20210624
  Receipt Date: 20210624
  Transmission Date: 20210717
  Serious: Yes (Hospitalization)
  Sender: FDA-Public Use
  Company Number: US-SEATTLE GENETICS-2021SGN02873

PATIENT
  Sex: Female

DRUGS (1)
  1. TUCATINIB [Suspect]
     Active Substance: TUCATINIB
     Indication: PRODUCT USED FOR UNKNOWN INDICATION
     Dosage: 150 MG

REACTIONS (11)
  - Back pain [Unknown]
  - Lung neoplasm malignant [Unknown]
  - Anxiety [Unknown]
  - Brain cancer metastatic [Unknown]
  - Arthralgia [Unknown]
  - Radiotherapy [Unknown]
  - Urinary tract infection [Unknown]
  - Unevaluable event [Unknown]
  - Hepatic pain [Unknown]
  - Back disorder [Unknown]
  - Malignant neoplasm progression [Unknown]
